APPROVED DRUG PRODUCT: LIOTHYRONINE SODIUM
Active Ingredient: LIOTHYRONINE SODIUM
Strength: EQ 0.01MG BASE/ML
Dosage Form/Route: INJECTABLE;INJECTION
Application: A076923 | Product #001
Applicant: XGEN PHARMACEUTICALS DJB INC
Approved: Aug 17, 2005 | RLD: No | RS: Yes | Type: RX